FAERS Safety Report 21831387 (Version 1)
Quarter: 2023Q1

REPORT INFORMATION
  Report Type: Spontaneous
  Country: IT (occurrence: IT)
  Receive Date: 20230106
  Receipt Date: 20230106
  Transmission Date: 20230418
  Serious: Yes (Other)
  Sender: FDA-Public Use
  Company Number: IT-Merck Healthcare KGaA-9355424

PATIENT
  Sex: Male

DRUGS (3)
  1. BISOPROLOL [Suspect]
     Active Substance: BISOPROLOL
     Indication: Extrasystoles
     Route: 065
  2. EUTHYROX [Suspect]
     Active Substance: LEVOTHYROXINE SODIUM
     Indication: Hypothyroidism
     Route: 065
  3. PAROXETINE HYDROCHLORIDE [Suspect]
     Active Substance: PAROXETINE HYDROCHLORIDE
     Indication: Anxiety
     Route: 065

REACTIONS (2)
  - Acute lymphocytic leukaemia [Unknown]
  - Foetal exposure during pregnancy [Recovered/Resolved]
